FAERS Safety Report 18049756 (Version 1)
Quarter: 2020Q3

REPORT INFORMATION
  Report Type: Spontaneous
  Country: DE (occurrence: DE)
  Receive Date: 20200721
  Receipt Date: 20200721
  Transmission Date: 20201103
  Serious: Yes (Hospitalization, Disabling, Other)
  Sender: FDA-Public Use
  Company Number: DE-009507513-2005DEU003200

PATIENT
  Age: 30 Year
  Sex: Female

DRUGS (1)
  1. PEMBROLIZUMAB. [Suspect]
     Active Substance: PEMBROLIZUMAB
     Indication: MALIGNANT MELANOMA STAGE III
     Dosage: 200 MG, EVERY 3 WEEKS
     Dates: start: 20190626, end: 20200323

REACTIONS (13)
  - Autoimmune hepatitis [Recovered/Resolved]
  - Weight increased [Recovered/Resolved]
  - Swelling face [Unknown]
  - Pleurisy [Recovered/Resolved]
  - Immunosuppression [Unknown]
  - Autoimmune thyroiditis [Recovered/Resolved with Sequelae]
  - Pericardial effusion [Recovering/Resolving]
  - Generalised oedema [Unknown]
  - Polyserositis [Recovering/Resolving]
  - Oedema peripheral [Unknown]
  - Pleural effusion [Recovering/Resolving]
  - Conjunctival oedema [Unknown]
  - Face oedema [Unknown]

NARRATIVE: CASE EVENT DATE: 201910
